FAERS Safety Report 22053358 (Version 4)
Quarter: 2023Q2

REPORT INFORMATION
  Report Type: Spontaneous
  Country: DE (occurrence: DE)
  Receive Date: 20230302
  Receipt Date: 20230512
  Transmission Date: 20230722
  Serious: Yes (Life-Threatening, Disabling, Other)
  Sender: FDA-Public Use
  Company Number: DE-BRISTOL-MYERS SQUIBB COMPANY-2023-027366

PATIENT
  Age: 36 Year
  Sex: Female
  Weight: 65 kg

DRUGS (2)
  1. NIVOLUMAB [Suspect]
     Active Substance: NIVOLUMAB
     Indication: Malignant melanoma
     Dosage: DOSE : UNAVAILABLE;     FREQ : UNAVAILABLE
     Route: 042
     Dates: start: 20220714, end: 20220920
  2. IPILIMUMAB [Suspect]
     Active Substance: IPILIMUMAB
     Indication: Malignant melanoma
     Route: 042
     Dates: start: 20220714, end: 20220920

REACTIONS (13)
  - Immune-mediated encephalitis [Recovered/Resolved]
  - Tubulointerstitial nephritis [Recovered/Resolved]
  - Immune-mediated myocarditis [Recovered/Resolved]
  - Hypophysitis [Recovered/Resolved]
  - Optic neuritis [Recovered/Resolved]
  - Blindness [Not Recovered/Not Resolved]
  - Colitis [Recovered/Resolved]
  - Pneumonitis [Recovered/Resolved]
  - Coma [Unknown]
  - Hyponatraemia [Unknown]
  - Hypokalaemia [Unknown]
  - Pneumonia aspiration [Unknown]
  - Gastroenteritis [Unknown]

NARRATIVE: CASE EVENT DATE: 20220901
